FAERS Safety Report 5069635-X (Version None)
Quarter: 2006Q3

REPORT INFORMATION
  Report Type: 
  Country: None (occurrence: None)
  Receive Date: 20060803
  Receipt Date: 20060615
  Transmission Date: 20061208
  Serious: Yes (Death, Hospitalization)
  Sender: FDA-Public Use
  Company Number: US-ROCHE-452008

PATIENT
  Age: 63 Year
  Sex: Male

DRUGS (3)
  1. CAPECITABINE [Suspect]
     Indication: PANCREATIC CARCINOMA
     Dosage: NO FREQUENCY PROVIDED.
     Route: 048
     Dates: start: 20060426
  2. OXALIPLATIN [Suspect]
     Indication: PANCREATIC CARCINOMA
     Dosage: NO FREQUENCY PROVIDED.
     Route: 042
     Dates: start: 20060426
  3. GEMCITABINE [Suspect]
     Indication: PANCREATIC CARCINOMA
     Dosage: NO FREQUENCY PROVIDED.
     Route: 042
     Dates: start: 20060426

REACTIONS (9)
  - ANAEMIA [None]
  - BRADYCARDIA [None]
  - DEATH [None]
  - DEVICE MIGRATION [None]
  - DUODENAL ULCER [None]
  - DYSURIA [None]
  - HYPOKALAEMIA [None]
  - HYPOTENSION [None]
  - LEUKOPENIA [None]
